FAERS Safety Report 6196084-3 (Version None)
Quarter: 2009Q2

REPORT INFORMATION
  Report Type: 
  Country: None (occurrence: None)
  Receive Date: 20090520
  Receipt Date: 20070719
  Transmission Date: 20091009
  Serious: Yes (Hospitalization)
  Sender: FDA-Public Use
  Company Number: US-ASTRAZENECA-2006UW25062

PATIENT
  Age: 9525 Day
  Sex: Female
  Weight: 111.4 kg

DRUGS (33)
  1. SEROQUEL [Suspect]
     Indication: INSOMNIA
     Route: 048
     Dates: start: 20040901, end: 20060503
  2. SEROQUEL [Suspect]
     Indication: BIPOLAR DISORDER
     Route: 048
     Dates: start: 20040901, end: 20060503
  3. SEROQUEL [Suspect]
     Dosage: 25-500 MG
     Route: 048
  4. SEROQUEL [Suspect]
     Dosage: 25-500 MG
     Route: 048
  5. ABILIFY [Concomitant]
     Dosage: 2.5 - 50 MG
     Route: 065
     Dates: start: 20070104, end: 20070401
  6. GEODON [Concomitant]
     Route: 065
     Dates: start: 20021107, end: 20050302
  7. HALDOL [Concomitant]
     Dosage: 4 - 5 MG
     Route: 065
     Dates: start: 20030818, end: 20040121
  8. RISPERDAL [Concomitant]
     Route: 065
     Dates: start: 20021107, end: 20040428
  9. PERIACTIN [Concomitant]
     Indication: NIGHTMARE
     Route: 048
  10. BUSPAR [Concomitant]
     Indication: ANXIETY
     Dosage: 15 MG-30 MG
     Route: 048
  11. TRAZODONE HCL [Concomitant]
     Dosage: 50 MG - 150 MG
     Route: 065
  12. CYMBALTA [Concomitant]
     Indication: DEPRESSION
     Dosage: 30 MG - 600 MG
     Route: 065
  13. KLONOPIN [Concomitant]
     Indication: FLASHBACK
     Dosage: 0.5 MG - 5 MG
     Route: 048
  14. ATIVAN [Concomitant]
     Indication: ANXIETY
     Dosage: 0.5 MG - 1 MG
     Route: 048
  15. LIPITOR [Concomitant]
     Dosage: 20 MG - 40 MG
     Route: 048
  16. FLONASE [Concomitant]
     Dosage: (120 INH) 16 GM
     Route: 045
  17. AVANDIA [Concomitant]
     Route: 048
  18. LEXAPRO [Concomitant]
     Dosage: 10 MG - 30 MG
     Route: 048
  19. DEPAKOTE [Concomitant]
     Dosage: 250 MG - 1250 MG
     Route: 048
  20. TYLENOL [Concomitant]
     Route: 048
  21. MAALOX [Concomitant]
     Route: 048
  22. XANAX [Concomitant]
     Route: 048
  23. VYTORIN [Concomitant]
     Route: 048
  24. ALLEGRA [Concomitant]
     Route: 048
  25. NEURONTIN [Concomitant]
     Dosage: 600 MG - 900 MG
     Route: 048
  26. EFFEXOR [Concomitant]
     Dosage: 37.5 MG - 75 MG
     Route: 048
  27. LOPID [Concomitant]
     Route: 048
  28. NASONEX [Concomitant]
     Route: 045
  29. BYETTA [Concomitant]
     Dosage: 5-10 MCG
     Route: 065
  30. METFORMIN HCL [Concomitant]
     Route: 048
  31. REGLAN [Concomitant]
     Route: 048
  32. NIASPAN [Concomitant]
     Route: 048
  33. ZYPREXA [Concomitant]
     Dosage: 5 MG - 20 MG
     Route: 065

REACTIONS (43)
  - ABDOMINAL PAIN [None]
  - ACUTE CORONARY SYNDROME [None]
  - APHTHOUS STOMATITIS [None]
  - ARTHRALGIA [None]
  - BACK PAIN [None]
  - BIPOLAR DISORDER [None]
  - BRONCHITIS CHRONIC [None]
  - CATHETERISATION CARDIAC [None]
  - CELLULITIS [None]
  - CHEST DISCOMFORT [None]
  - CHEST PAIN [None]
  - DEPRESSION [None]
  - DIABETES MELLITUS [None]
  - DIARRHOEA [None]
  - DRY SKIN [None]
  - FATIGUE [None]
  - GASTROENTERITIS [None]
  - GASTROOESOPHAGEAL REFLUX DISEASE [None]
  - GENERALISED ANXIETY DISORDER [None]
  - HYPERCHOLESTEROLAEMIA [None]
  - HYPERLIPIDAEMIA [None]
  - HYPERSOMNIA [None]
  - HYPERTENSION [None]
  - HYPERTRIGLYCERIDAEMIA [None]
  - LIGAMENT SPRAIN [None]
  - MAJOR DEPRESSION [None]
  - NASAL CONGESTION [None]
  - OBESITY [None]
  - OROPHARYNGEAL PAIN [None]
  - PAIN IN EXTREMITY [None]
  - PANIC ATTACK [None]
  - PHARYNGITIS [None]
  - PILONIDAL CYST [None]
  - POST-TRAUMATIC STRESS DISORDER [None]
  - RESTLESS LEGS SYNDROME [None]
  - RHINITIS ALLERGIC [None]
  - SCHIZOAFFECTIVE DISORDER DEPRESSIVE TYPE [None]
  - SINUSITIS [None]
  - SKIN FISSURES [None]
  - SLEEP APNOEA SYNDROME [None]
  - SUICIDAL IDEATION [None]
  - TOBACCO ABUSE [None]
  - TYPE 2 DIABETES MELLITUS [None]
